FAERS Safety Report 7883101-5 (Version None)
Quarter: 2011Q4

REPORT INFORMATION
  Report Type: 
  Country: None (occurrence: None)
  Receive Date: 20111102
  Receipt Date: 20111025
  Transmission Date: 20120403
  Serious: Yes (Hospitalization)
  Sender: FDA-Public Use
  Company Number: US-BIOGENIDEC-2011BI040876

PATIENT
  Age: 45 Year
  Sex: Female

DRUGS (3)
  1. TYSABRI [Suspect]
     Route: 042
     Dates: start: 20090224, end: 20091001
  2. TYSABRI [Suspect]
     Indication: MULTIPLE SCLEROSIS
     Route: 042
     Dates: start: 20110908, end: 20110908
  3. TYSABRI [Suspect]
     Route: 042
     Dates: start: 20070529, end: 20080307

REACTIONS (8)
  - MULTIPLE SCLEROSIS RELAPSE [None]
  - RENAL DISORDER [None]
  - CENTRAL NERVOUS SYSTEM LESION [None]
  - NAUSEA [None]
  - PRURITUS GENERALISED [None]
  - ARTHRITIS [None]
  - PAIN IN EXTREMITY [None]
  - MIGRAINE [None]
